FAERS Safety Report 5326340-X (Version None)
Quarter: 2007Q2

REPORT INFORMATION
  Report Type: 
  Country: None (occurrence: None)
  Receive Date: 20070516
  Receipt Date: 20070507
  Transmission Date: 20071010
  Serious: Yes (Hospitalization)
  Sender: FDA-Public Use
  Company Number: A0650338A

PATIENT
  Age: 44 Year
  Sex: Female
  Weight: 42 kg

DRUGS (3)
  1. PAZOPANIB [Suspect]
     Dosage: 400MG PER DAY
     Route: 048
     Dates: start: 20070328
  2. LAPATINIB [Suspect]
     Dosage: 1000MG PER DAY
     Route: 048
     Dates: start: 20070328
  3. TORADOL [Concomitant]
     Dosage: 20MG TWICE PER DAY
     Route: 048
     Dates: start: 20070312

REACTIONS (2)
  - RECTAL HAEMORRHAGE [None]
  - SYNCOPE [None]
